FAERS Safety Report 4827337-6 (Version None)
Quarter: 2005Q4

REPORT INFORMATION
  Report Type: 
  Country: None (occurrence: None)
  Receive Date: 20051114
  Receipt Date: 20050929
  Transmission Date: 20060501
  Serious: Yes (Hospitalization)
  Sender: FDA-Public Use
  Company Number: US-MERCK-0510USA00462

PATIENT
  Age: 43 Year
  Sex: Male
  Weight: 136 kg

DRUGS (37)
  1. VIOXX [Suspect]
     Indication: ARTHRALGIA
     Route: 048
     Dates: start: 20001101, end: 20020730
  2. ALBUTEROL [Concomitant]
     Route: 065
  3. ALTACE [Concomitant]
     Route: 065
  4. ALLEGRA [Concomitant]
     Route: 065
  5. ASPIRIN [Concomitant]
     Route: 065
  6. BACTRIM [Concomitant]
     Route: 065
  7. BENADRYL [Concomitant]
     Route: 065
  8. CEFTIN [Concomitant]
     Route: 065
  9. LORATADINE [Concomitant]
     Route: 065
  10. DARVOCET-N 100 [Concomitant]
     Route: 065
  11. DOXYCYCLINE [Concomitant]
     Route: 065
  12. ENTEX (NEW FORMULA) [Concomitant]
     Route: 065
  13. ERYTHROMYCIN [Concomitant]
     Route: 065
  14. FENTANYL [Concomitant]
     Route: 065
  15. GLUCOSAMINE [Concomitant]
     Route: 065
  16. GUAIFENESIN [Concomitant]
     Route: 065
  17. HYALGAN [Concomitant]
     Route: 065
  18. HYDROCODONE BITARTRATE + ACETAMINOPHEN [Concomitant]
     Route: 065
  19. IBUPROFEN [Concomitant]
     Route: 065
  20. LAMISIL [Concomitant]
     Route: 065
  21. LIPITOR [Concomitant]
     Route: 065
  22. METOPROLOL [Concomitant]
     Route: 065
  23. MORPHINE [Concomitant]
     Route: 065
  24. NAPROXEN [Concomitant]
     Route: 065
  25. NITROSTAT [Concomitant]
     Route: 065
  26. PLAVIX [Concomitant]
     Route: 065
  27. PREVACID [Concomitant]
     Route: 065
  28. ROBITUSSIN-DM [Concomitant]
     Route: 065
  29. SELDANE [Concomitant]
     Route: 065
  30. SEPTRA DS [Concomitant]
     Route: 065
  31. SUDAFED 12 HOUR [Concomitant]
     Route: 065
  32. TORADOL [Concomitant]
     Route: 065
  33. VALIUM [Concomitant]
     Route: 065
  34. VANCENASE [Concomitant]
     Route: 065
  35. VERSED [Concomitant]
     Route: 065
  36. ZYRTEC [Concomitant]
     Route: 065
  37. ENOXAPARIN SODIUM [Concomitant]
     Route: 065

REACTIONS (1)
  - MYOCARDIAL INFARCTION [None]
